FAERS Safety Report 5635578-3 (Version None)
Quarter: 2008Q1

REPORT INFORMATION
  Report Type: 
  Country: None (occurrence: None)
  Receive Date: 20080222
  Receipt Date: 20080211
  Transmission Date: 20080703
  Serious: Yes (Other)
  Sender: FDA-Public Use
  Company Number: US-PFIZER INC-2008015435

PATIENT
  Sex: Female
  Weight: 59.09 kg

DRUGS (6)
  1. CHANTIX [Suspect]
     Indication: SMOKING CESSATION THERAPY
  2. ESTROGENS [Concomitant]
  3. VYTORIN [Concomitant]
  4. TRICOR [Concomitant]
  5. FOSAMAX [Concomitant]
  6. VITAMINS [Concomitant]

REACTIONS (1)
  - MANIA [None]
